FAERS Safety Report 21800103 (Version 1)
Quarter: 2022Q4

REPORT INFORMATION
  Report Type: Spontaneous
  Country: US (occurrence: None)
  Receive Date: 20221229
  Receipt Date: 20221229
  Transmission Date: 20230112
  Serious: Yes (Disabling, Other)
  Sender: FDA-Public Use
  Company Number: None

PATIENT
  Age: 77 Year
  Sex: Female
  Weight: 68.49 kg

DRUGS (1)
  1. BENZONATATE [Suspect]
     Active Substance: BENZONATATE

REACTIONS (7)
  - Respiratory disorder [None]
  - Dizziness [None]
  - Fall [None]
  - Movement disorder [None]
  - Sensation of foreign body [None]
  - Drug ineffective [None]
  - Fatigue [None]

NARRATIVE: CASE EVENT DATE: 20221212
